FAERS Safety Report 18572824 (Version 9)
Quarter: 2022Q4

REPORT INFORMATION
  Report Type: Spontaneous
  Country: US (occurrence: US)
  Receive Date: 20201203
  Receipt Date: 20221013
  Transmission Date: 20230113
  Serious: Yes (Other)
  Sender: FDA-Public Use
  Company Number: US-UNITED THERAPEUTICS-UNT-2020-018303

PATIENT
  Sex: Female
  Weight: 77.098 kg

DRUGS (17)
  1. TYVASO [Suspect]
     Active Substance: TREPROSTINIL
     Indication: Pulmonary arterial hypertension
     Dosage: UNK
     Dates: start: 20201023
  2. TYVASO [Suspect]
     Active Substance: TREPROSTINIL
     Dosage: 18-54 ?G, QID
  3. TYVASO [Suspect]
     Active Substance: TREPROSTINIL
     Dosage: 36 ?G
     Dates: start: 2020, end: 2020
  4. TYVASO [Suspect]
     Active Substance: TREPROSTINIL
     Dosage: 18 ?G
     Dates: start: 2020, end: 2020
  5. TYVASO [Suspect]
     Active Substance: TREPROSTINIL
     Dosage: UNK
     Dates: start: 2020, end: 20210105
  6. OFEV [Suspect]
     Active Substance: NINTEDANIB
     Indication: Idiopathic pulmonary fibrosis
     Dosage: 150 MG, Q12H (1 IN 12 HOURS)
     Route: 048
     Dates: start: 20200916
  7. OFEV [Suspect]
     Active Substance: NINTEDANIB
     Indication: Pulmonary arterial hypertension
     Dosage: 200 MG, QD (1 EVERY 1 DAY)
     Route: 048
  8. OFEV [Suspect]
     Active Substance: NINTEDANIB
     Dosage: 100 MG, BID [200 MG], 100 MG, 1 IN 0.5 DAY)]
     Route: 048
  9. OFEV [Suspect]
     Active Substance: NINTEDANIB
     Dosage: 100 MG, BID [200 MG], 100 MG, 1 IN 0.5 DAY)]
     Route: 048
  10. OFEV [Suspect]
     Active Substance: NINTEDANIB
     Dosage: 100 MG, BID [200 MG], 100 MG, 1 IN 0.5 DAY)]
     Route: 048
  11. OFEV [Suspect]
     Active Substance: NINTEDANIB
     Dosage: 100 MG, BID [200 MG], 100 MG, 1 IN 0.5 DAY)]
     Route: 048
  12. OFEV [Suspect]
     Active Substance: NINTEDANIB
     Dosage: 100 MG, BID [200 MG], 100 MG, 1 IN 0.5 DAY)]
     Route: 048
  13. OFEV [Suspect]
     Active Substance: NINTEDANIB
     Dosage: 100 MG, BID [200 MG], 100 MG, 1 IN 0.5 DAY)]
     Route: 048
  14. UPTRAVI [Suspect]
     Active Substance: SELEXIPAG
     Indication: Product used for unknown indication
     Dosage: UNK
     Route: 065
  15. PROBIOTICS NOS [Suspect]
     Active Substance: PROBIOTICS NOS
     Indication: Product used for unknown indication
     Dosage: UNK
     Route: 065
  16. OPSUMIT [Concomitant]
     Active Substance: MACITENTAN
     Indication: Pulmonary arterial hypertension
     Dosage: 10 MG, QD
     Route: 048
     Dates: end: 20220122
  17. REVATIO [Concomitant]
     Active Substance: SILDENAFIL CITRATE
     Indication: Product used for unknown indication
     Dosage: UNK
     Route: 065

REACTIONS (30)
  - Hallucination [Unknown]
  - Seasonal allergy [Unknown]
  - Wheezing [Unknown]
  - Asthma [Unknown]
  - Throat irritation [Not Recovered/Not Resolved]
  - Dyspnoea [Unknown]
  - Oropharyngeal pain [Recovered/Resolved]
  - Nausea [Recovered/Resolved]
  - Headache [Unknown]
  - Dysphagia [Not Recovered/Not Resolved]
  - Feeling abnormal [Unknown]
  - Dysgeusia [Unknown]
  - Liver function test increased [Unknown]
  - Dyspepsia [Not Recovered/Not Resolved]
  - Depression [Unknown]
  - Abdominal discomfort [Unknown]
  - Gastric disorder [Recovering/Resolving]
  - Palpitations [Unknown]
  - Anxiety [Unknown]
  - Constipation [Recovered/Resolved]
  - Fibromyalgia [Unknown]
  - Diarrhoea [Unknown]
  - Blood test abnormal [Unknown]
  - Dyspnoea exertional [Unknown]
  - Illusion [Unknown]
  - Raynaud^s phenomenon [Unknown]
  - Faeces soft [Unknown]
  - Multiple allergies [Unknown]
  - Extra dose administered [Unknown]
  - Product dose omission issue [Unknown]

NARRATIVE: CASE EVENT DATE: 20200101
